FAERS Safety Report 21003631 (Version 1)
Quarter: 2022Q2

REPORT INFORMATION
  Report Type: Spontaneous
  Country: US (occurrence: None)
  Receive Date: 20220623
  Receipt Date: 20220623
  Transmission Date: 20220720
  Serious: Yes (Life-Threatening, Hospitalization, Disabling, Other)
  Sender: FDA-Public Use
  Company Number: None

PATIENT
  Age: 66 Year
  Sex: Female
  Weight: 94.05 kg

DRUGS (6)
  1. CEFUROXIME AXETIL [Suspect]
     Active Substance: CEFUROXIME AXETIL
     Indication: Urinary tract infection
     Dosage: OTHER QUANTITY : 1 TABLET(S);?FREQUENCY : TWICE A DAY;?
     Route: 048
     Dates: start: 20220622, end: 20220622
  2. ciprofloxacin 500 MG tablet (now ) [Concomitant]
  3. citalopram 40 MG tablet [Concomitant]
  4. estradioL 10 mcg vaginal tablet [Concomitant]
  5. fluticasone furoate-vilanteroL 100-25mcg/dose blister with device powd [Concomitant]
  6. CLONAZEPAM ODT OR 1mg [Concomitant]

REACTIONS (5)
  - Urticaria [None]
  - Lip swelling [None]
  - Swelling face [None]
  - Neck pain [None]
  - Hypersensitivity [None]

NARRATIVE: CASE EVENT DATE: 20220622
